FAERS Safety Report 4324796-2 (Version None)
Quarter: 2004Q1

REPORT INFORMATION
  Report Type: 
  Country: None (occurrence: None)
  Receive Date: 20040326
  Receipt Date: 20040127
  Transmission Date: 20041129
  Serious: Yes (Hospitalization)
  Sender: FDA-Public Use
  Company Number: FR-GLAXOSMITHKLINE-B0321344A

PATIENT
  Sex: Male

DRUGS (3)
  1. RETROVIR [Suspect]
     Indication: ANTIVIRAL PROPHYLAXIS
     Route: 048
     Dates: start: 20020611, end: 20020723
  2. COMBIVIR [Suspect]
     Indication: HIV INFECTION
  3. VIDEX [Suspect]
     Indication: HIV INFECTION

REACTIONS (9)
  - DEVELOPMENTAL DELAY [None]
  - DRUG EXPOSURE DURING PREGNANCY [None]
  - GASTROENTERITIS [None]
  - GROWTH RETARDATION [None]
  - HYPERLACTACIDAEMIA [None]
  - HYPOTONIA [None]
  - HYPOTONIA NEONATAL [None]
  - NEONATAL DISORDER [None]
  - URINARY TRACT INFECTION [None]
